FAERS Safety Report 11182756 (Version 3)
Quarter: 2015Q2

REPORT INFORMATION
  Report Type: Spontaneous
  Country: US (occurrence: US)
  Receive Date: 20150611
  Receipt Date: 20150629
  Transmission Date: 20150821
  Serious: No
  Sender: FDA-Public Use
  Company Number: US-PFIZER INC-2015190805

PATIENT
  Sex: Female

DRUGS (2)
  1. ADVIL [Suspect]
     Active Substance: IBUPROFEN
     Indication: MYALGIA
     Dosage: UNK
  2. ADVIL [Suspect]
     Active Substance: IBUPROFEN
     Indication: MYALGIA
     Dosage: UNK

REACTIONS (5)
  - Pruritus generalised [Recovering/Resolving]
  - Feeling hot [Unknown]
  - Product packaging confusion [Not Recovered/Not Resolved]
  - Product label confusion [Not Recovered/Not Resolved]
  - Hypersensitivity [Unknown]
